FAERS Safety Report 12318119 (Version 3)
Quarter: 2017Q3

REPORT INFORMATION
  Report Type: Spontaneous
  Country: US (occurrence: US)
  Receive Date: 20160429
  Receipt Date: 20170731
  Transmission Date: 20171127
  Serious: Yes (Death, Other)
  Sender: FDA-Public Use
  Company Number: US-ASTELLAS-2016US016069

PATIENT
  Age: 80 Year
  Sex: Male

DRUGS (1)
  1. XTANDI [Suspect]
     Active Substance: ENZALUTAMIDE
     Indication: HORMONE-REFRACTORY PROSTATE CANCER
     Route: 048
     Dates: start: 20160204

REACTIONS (10)
  - Sneezing [Unknown]
  - Insomnia [Unknown]
  - Fatigue [Unknown]
  - Death [Fatal]
  - Back pain [Unknown]
  - Orchidectomy [Unknown]
  - Decreased appetite [Unknown]
  - Nasal congestion [Unknown]
  - Prostatic specific antigen increased [Not Recovered/Not Resolved]
  - Confusional state [Unknown]

NARRATIVE: CASE EVENT DATE: 20160412
